FAERS Safety Report 9233506 (Version 1)
Quarter: 2013Q2

REPORT INFORMATION
  Report Type: Spontaneous
  Country: US (occurrence: None)
  Receive Date: 20130412
  Receipt Date: 20130412
  Transmission Date: 20140414
  Serious: No
  Sender: FDA-Public Use
  Company Number: COL_13424_2013

PATIENT
  Age: 47 Year
  Sex: Female

DRUGS (1)
  1. PEROXYL [Suspect]
     Indication: DENTAL DISORDER PROPHYLAXIS
     Dosage: USES CAP TO MEASURE DOSE/ONCE/ORAL
     Dates: start: 20130320

REACTIONS (1)
  - Hypersensitivity [None]
